FAERS Safety Report 23488080 (Version 1)
Quarter: 2024Q1

REPORT INFORMATION
  Report Type: Spontaneous
  Country: US (occurrence: None)
  Receive Date: 20240206
  Receipt Date: 20240206
  Transmission Date: 20240410
  Serious: Yes (Death)
  Sender: FDA-Public Use
  Company Number: None

PATIENT
  Age: 63 Year
  Sex: Male

DRUGS (3)
  1. GLEOSTINE [Suspect]
     Active Substance: LOMUSTINE
     Indication: Brain neoplasm malignant
     Dosage: OTHER FREQUENCY : ONCE EVERY 6 WKS;?
  2. GLEOSTINE [Suspect]
     Active Substance: LOMUSTINE
     Dosage: OTHER FREQUENCY : ONCE EVERY 6 WKS.;?
  3. GLEOSTINE [Suspect]
     Active Substance: LOMUSTINE
     Dosage: OTHER FREQUENCY : ONCE EVERY 6 WKS.;?

REACTIONS (1)
  - Death [None]

NARRATIVE: CASE EVENT DATE: 20240131
